FAERS Safety Report 20328880 (Version 1)
Quarter: 2022Q1

REPORT INFORMATION
  Report Type: Spontaneous
  Country: DE (occurrence: DE)
  Receive Date: 20220112
  Receipt Date: 20220112
  Transmission Date: 20220424
  Serious: Yes (Hospitalization)
  Sender: FDA-Public Use
  Company Number: DE-Merck Healthcare KGaA-9269226

PATIENT
  Sex: Female

DRUGS (6)
  1. EUTHYROX [Suspect]
     Active Substance: LEVOTHYROXINE SODIUM
     Indication: Product used for unknown indication
  2. EUTHYROX [Suspect]
     Active Substance: LEVOTHYROXINE SODIUM
     Dosage: DOSE INCREASED
  3. BISOPROLOL FUMARATE [Suspect]
     Active Substance: BISOPROLOL FUMARATE
     Indication: Product used for unknown indication
  4. BISOPROLOL FUMARATE [Suspect]
     Active Substance: BISOPROLOL FUMARATE
     Dosage: 2.5 MG IN MORNING, 1/2 TABLET EACH AT NOON AND EVENING
     Dates: end: 20210927
  5. EFEROX [Suspect]
     Active Substance: LEVOTHYROXINE SODIUM
     Indication: Product used for unknown indication
     Dosage: THERAPY STARTED ON 27 SEP 2021
  6. EFEROX [Suspect]
     Active Substance: LEVOTHYROXINE SODIUM
     Dosage: DOSE INCREASED

REACTIONS (13)
  - Gait disturbance [Recovered/Resolved]
  - Fatigue [Recovering/Resolving]
  - Peripheral coldness [Recovering/Resolving]
  - Rhinorrhoea [Recovering/Resolving]
  - Blood thyroid stimulating hormone increased [Unknown]
  - Decreased appetite [Recovering/Resolving]
  - Nervousness [Recovering/Resolving]
  - Asthenia [Recovering/Resolving]
  - Drug intolerance [Unknown]
  - Drug interaction [Unknown]
  - Headache [Recovering/Resolving]
  - Hypertension [Recovering/Resolving]
  - Weight decreased [Recovering/Resolving]

NARRATIVE: CASE EVENT DATE: 20210101
